FAERS Safety Report 16143771 (Version 1)
Quarter: 2019Q2

REPORT INFORMATION
  Report Type: Spontaneous
  Country: IT (occurrence: IT)
  Receive Date: 20190401
  Receipt Date: 20190401
  Transmission Date: 20190711
  Serious: Yes (Hospitalization)
  Sender: FDA-Public Use
  Company Number: IT-TASMAN PHARMA, INC.-2019TSM00021

PATIENT
  Age: 22 Year
  Sex: Female
  Weight: 91 kg

DRUGS (3)
  1. UNSPECIFIED BENZODIAZEPINE [Concomitant]
     Active Substance: BENZODIAZEPINE
     Indication: AGGRESSION
  2. UNSPECIFIED BENZODIAZEPINE [Concomitant]
     Active Substance: BENZODIAZEPINE
     Indication: AGITATION
     Route: 065
  3. CLOZAPINE. [Suspect]
     Active Substance: CLOZAPINE
     Indication: SCHIZOPHRENIA
     Dosage: GRADUALLY INTRODUCED UP TO A DOSE OF 200 MG DAILY
     Route: 065

REACTIONS (2)
  - Pericarditis [Recovered/Resolved]
  - Cardiac tamponade [Recovered/Resolved]
